FAERS Safety Report 9057213 (Version 2)
Quarter: 2013Q1

REPORT INFORMATION
  Report Type: Spontaneous
  Country: AR (occurrence: AR)
  Receive Date: 20130131
  Receipt Date: 20130228
  Transmission Date: 20140127
  Serious: Yes (Disabling, Other)
  Sender: FDA-Public Use
  Company Number: AR-AMGEN-ARGSP2013005915

PATIENT
  Age: 51 Year
  Sex: Female

DRUGS (3)
  1. PROLIA [Suspect]
     Indication: OSTEOPOROSIS POSTMENOPAUSAL
     Dosage: 60 MG, UNK
     Route: 065
     Dates: start: 20130116
  2. LYSINE HYDROCHLORIDE [Concomitant]
  3. VALIUM                             /00017001/ [Concomitant]

REACTIONS (5)
  - Hypoacusis [Recovered/Resolved]
  - Ear pain [Recovered/Resolved]
  - Muscle contractions involuntary [Recovered/Resolved]
  - Ear swelling [Recovered/Resolved]
  - Emotional disorder [Recovered/Resolved]
